FAERS Safety Report 9591110 (Version 2)
Quarter: 2013Q4

REPORT INFORMATION
  Report Type: Spontaneous
  Country: US (occurrence: US)
  Receive Date: 20131003
  Receipt Date: 20131003
  Transmission Date: 20140711
  Serious: No
  Sender: FDA-Public Use
  Company Number: US-AMGEN-USASP2012068390

PATIENT
  Age: 73 Year
  Sex: Male
  Weight: 68.03 kg

DRUGS (2)
  1. ENBREL [Suspect]
     Indication: PSORIASIS
     Dosage: 50 MG, 2 TIMES/WK
     Dates: start: 20120801, end: 20121011
  2. AZATHIOPRINE [Concomitant]
     Indication: PSORIASIS
     Dosage: 50 MG, TID
     Route: 048
     Dates: start: 20120616

REACTIONS (1)
  - Drug ineffective [Recovered/Resolved]
